FAERS Safety Report 7993650-7 (Version None)
Quarter: 2011Q4

REPORT INFORMATION
  Report Type: 
  Country: None (occurrence: None)
  Receive Date: 20111219
  Receipt Date: 20111216
  Transmission Date: 20120403
  Serious: Yes (Death)
  Sender: FDA-Public Use
  Company Number: US-ASTRAZENECA-2011SE76112

PATIENT
  Age: 34 Year
  Sex: Female

DRUGS (7)
  1. CARISOPRODOL [Suspect]
  2. FENTANYL [Suspect]
     Route: 062
  3. ALPRAZOLAM [Suspect]
  4. MEPROBAMATE [Suspect]
  5. OXYCODONE HCL [Suspect]
  6. LIDOCAINE [Suspect]
     Route: 065
  7. BUPRENORPHINE HCL AND NALOXONE HCL [Suspect]
     Route: 060

REACTIONS (2)
  - CARDIO-RESPIRATORY ARREST [None]
  - TOXICITY TO VARIOUS AGENTS [None]
